FAERS Safety Report 6918132-2 (Version None)
Quarter: 2010Q3

REPORT INFORMATION
  Report Type: 
  Country: None (occurrence: None)
  Receive Date: 20100806
  Receipt Date: 20100730
  Transmission Date: 20110219
  Serious: Yes (Other)
  Sender: FDA-Public Use
  Company Number: TPA2010A04327

PATIENT
  Age: 56 Year
  Sex: Male
  Weight: 101.1521 kg

DRUGS (1)
  1. PREVACID [Suspect]
     Indication: DYSPEPSIA
     Dosage: 30 MG, 1 IN 1 D, PER ORAL
     Route: 048
     Dates: start: 19950101

REACTIONS (2)
  - HEPATIC CIRRHOSIS [None]
  - HEPATIC NEOPLASM MALIGNANT [None]
